FAERS Safety Report 10052268 (Version 3)
Quarter: 2014Q4

REPORT INFORMATION
  Report Type: Spontaneous
  Country: US (occurrence: US)
  Receive Date: 20140402
  Receipt Date: 20141212
  Transmission Date: 20150528
  Serious: Yes (Other)
  Sender: FDA-Public Use
  Company Number: US-AMGEN-USASP2014021857

PATIENT
  Age: 66 Year
  Sex: Female

DRUGS (7)
  1. ALLOPURINOL. [Concomitant]
     Active Substance: ALLOPURINOL
  2. XANAX [Concomitant]
     Active Substance: ALPRAZOLAM
  3. SENSIPAR [Suspect]
     Active Substance: CINACALCET HYDROCHLORIDE
     Indication: HYPERPARATHYROIDISM SECONDARY
     Dosage: 30 MG, 3 TIMES/WK
     Route: 065
     Dates: start: 201402
  4. NORVASC [Concomitant]
     Active Substance: AMLODIPINE BESYLATE
  5. TYLENOL [Concomitant]
     Active Substance: ACETAMINOPHEN
  6. EPOGEN [Suspect]
     Active Substance: ERYTHROPOIETIN
     Indication: PRODUCT USED FOR UNKNOWN INDICATION
     Route: 065
  7. RENVELA [Concomitant]
     Active Substance: SEVELAMER CARBONATE

REACTIONS (9)
  - Muscle spasms [Unknown]
  - Parathyroidectomy [Unknown]
  - Blood parathyroid hormone increased [Unknown]
  - Vitamin D abnormal [Unknown]
  - Blood calcium decreased [Unknown]
  - Blood phosphorus abnormal [Unknown]
  - Insomnia [Unknown]
  - Pain [Unknown]
  - Calcium ionised abnormal [Unknown]
